FAERS Safety Report 6919642-4 (Version None)
Quarter: 2010Q3

REPORT INFORMATION
  Report Type: 
  Country: None (occurrence: None)
  Receive Date: 20100811
  Receipt Date: 20100803
  Transmission Date: 20110219
  Serious: Yes (Life-Threatening)
  Sender: FDA-Public Use
  Company Number: GXKR2010GB08735

PATIENT
  Age: 16 Year
  Sex: Female

DRUGS (12)
  1. ITRACONAZOLE [Suspect]
     Indication: BRONCHOPULMONARY ASPERGILLOSIS ALLERGIC
     Dosage: 200 MG, UNK
     Route: 048
     Dates: start: 20100717, end: 20100724
  2. ITRACONAZOLE [Suspect]
     Indication: CYSTIC FIBROSIS
  3. CALCICHEW D3 [Concomitant]
     Dosage: Q
     Route: 048
  4. COLOMYCIN [Concomitant]
     Dosage: 2 MIU, BID
     Route: 048
  5. CREON [Concomitant]
     Dosage: ONCE A DAY
     Route: 065
  6. DALIVIT [Concomitant]
     Dosage: 0.6 ML, QD
     Route: 048
  7. PREDNISOLONE [Concomitant]
     Dosage: 10 MG, QD
     Route: 048
  8. PULMOZYME [Concomitant]
     Dosage: 2.5 ML, QD
  9. ALBUTEROL SULFATE AUTOHALER [Concomitant]
     Dosage: 5 MG, BID
  10. BUDESONIDE W/FORMOTEROL FUMARATE [Concomitant]
     Dosage: 2 DF, BID
  11. URSODIOL [Concomitant]
     Dosage: 500 MG, BID
     Route: 048
  12. VITAMIN E [Concomitant]
     Dosage: 50 MG, QD
     Route: 048

REACTIONS (1)
  - GRAND MAL CONVULSION [None]
